FAERS Safety Report 5150195-X (Version None)
Quarter: 2006Q4

REPORT INFORMATION
  Report Type: 
  Country: None (occurrence: None)
  Receive Date: 20061114
  Receipt Date: 20060826
  Transmission Date: 20070319
  Serious: Yes (Disabling)
  Sender: FDA-Public Use
  Company Number: GB-BAYER-200611060BNE

PATIENT
  Age: 22 Year
  Sex: Female

DRUGS (2)
  1. CANESTEN DUO [Suspect]
     Indication: CANDIDIASIS
     Route: 048
     Dates: start: 20060825, end: 20060825
  2. CANESTEN DUO [Suspect]
     Route: 061
     Dates: start: 20060825

REACTIONS (3)
  - ABASIA [None]
  - ACNE [None]
  - PAIN [None]
